FAERS Safety Report 4591606-8 (Version None)
Quarter: 2005Q1

REPORT INFORMATION
  Report Type: 
  Country: None (occurrence: None)
  Receive Date: 20050223
  Receipt Date: 20050223
  Transmission Date: 20050727
  Serious: Yes (Other)
  Sender: FDA-Public Use
  Company Number: None

PATIENT
  Age: 34 Year
  Sex: Female
  Weight: 55.3388 kg

DRUGS (2)
  1. ZOLOFT [Suspect]
     Indication: ANXIETY
     Dosage: 1     IN THE MORNING   ORAL
     Route: 048
     Dates: start: 20041027, end: 20041124
  2. ZOLOFT [Suspect]
     Indication: POST-TRAUMATIC STRESS DISORDER
     Dosage: 1     IN THE MORNING   ORAL
     Route: 048
     Dates: start: 20041027, end: 20041124

REACTIONS (1)
  - THINKING ABNORMAL [None]
